FAERS Safety Report 23984667 (Version 1)
Quarter: 2024Q2

REPORT INFORMATION
  Report Type: Spontaneous
  Country: GB (occurrence: GB)
  Receive Date: 20240618
  Receipt Date: 20240618
  Transmission Date: 20240715
  Serious: Yes (Disabling, Other)
  Sender: FDA-Public Use
  Company Number: GB-MHRA-MED-202406060956465150-TFCJB

PATIENT
  Age: 26 Year
  Sex: Female
  Weight: 60 kg

DRUGS (2)
  1. METRONIDAZOLE [Suspect]
     Active Substance: METRONIDAZOLE
     Indication: Adverse drug reaction
     Dosage: 2 DOSAGE FORM, ONCE A DAY
     Route: 065
     Dates: start: 20231002, end: 20231006
  2. OFLOXACIN [Suspect]
     Active Substance: OFLOXACIN
     Indication: Adverse drug reaction
     Dosage: UNK UNK, TWO TIMES A DAY
     Route: 065
     Dates: start: 20231002, end: 20231006

REACTIONS (10)
  - Dizziness [Recovering/Resolving]
  - Suicidal ideation [Recovered/Resolved]
  - Anxiety [Recovering/Resolving]
  - Panic attack [Recovered/Resolved]
  - Confusional state [Recovered/Resolved]
  - Tremor [Recovered/Resolved]
  - Nausea [Recovered/Resolved]
  - Anhedonia [Recovered/Resolved]
  - Headache [Recovered/Resolved]
  - Fatigue [Recovered/Resolved]

NARRATIVE: CASE EVENT DATE: 20231002
